FAERS Safety Report 15669065 (Version 1)
Quarter: 2018Q4

REPORT INFORMATION
  Report Type: Spontaneous
  Country: ZA (occurrence: ZA)
  Receive Date: 20181129
  Receipt Date: 20181129
  Transmission Date: 20190205
  Serious: No
  Sender: FDA-Public Use
  Company Number: ZA-LUPIN PHARMACEUTICALS INC.-2017-07361

PATIENT
  Age: 63 Year
  Sex: Female

DRUGS (12)
  1. SPIRACTIN                          /00006201/ [Suspect]
     Active Substance: SPIRONOLACTONE
     Indication: DIURETIC THERAPY
     Dosage: 25 MG, UNK
     Route: 048
  2. ECOTRIN [Suspect]
     Active Substance: ASPIRIN
     Indication: ANTICOAGULANT THERAPY
     Dosage: 81 MG, UNK
     Route: 048
  3. LYRICA [Concomitant]
     Active Substance: PREGABALIN
     Indication: PAIN
     Dosage: 150 MG, UNK
     Route: 048
     Dates: start: 201704
  4. IVEDAL [Suspect]
     Active Substance: ZOLPIDEM TARTRATE
     Indication: INSOMNIA
     Dosage: 10 MG, UNK
     Route: 048
  5. EUTHYROX [Suspect]
     Active Substance: LEVOTHYROXINE SODIUM
     Indication: THYROID DISORDER
     Dosage: 100 MCG, UNK
     Route: 048
  6. CARLOC [Suspect]
     Active Substance: CARVEDILOL
     Indication: CARDIAC DISORDER
     Dosage: 12.5 MG, UNK
     Route: 048
  7. ZARTAN CO [Suspect]
     Active Substance: HYDROCHLOROTHIAZIDE\LOSARTAN POTASSIUM
     Indication: HYPERTENSION
     Dosage: UNK (100/25 MG)
     Route: 048
  8. NEUROBION                          /00091901/ [Concomitant]
     Active Substance: HYDROXOCOBALAMIN\PYRIDOXINE HYDROCHLORIDE\THIAMINE HYDROCHLORIDE
     Indication: PRODUCT USED FOR UNKNOWN INDICATION
     Dosage: UNK
     Route: 048
     Dates: start: 201704
  9. PURICOS [Suspect]
     Active Substance: ALLOPURINOL
     Indication: GOUT
     Dosage: 300 MG, UNK
     Route: 048
  10. PLENISH-K [Suspect]
     Active Substance: POTASSIUM CHLORIDE
     Indication: BLOOD POTASSIUM ABNORMAL
     Dosage: 600 MG, UNK
     Route: 048
  11. PURESIS [Suspect]
     Active Substance: FUROSEMIDE
     Indication: DIURETIC THERAPY
     Dosage: 40 MG, UNK
     Route: 048
  12. TRAMAHEXAL [Concomitant]
     Active Substance: TRAMADOL HYDROCHLORIDE
     Indication: PAIN
     Dosage: 150 MG, UNK
     Route: 048
     Dates: start: 201704

REACTIONS (1)
  - Hypoaesthesia [Not Recovered/Not Resolved]

NARRATIVE: CASE EVENT DATE: 201703
